FAERS Safety Report 25269381 (Version 1)
Quarter: 2025Q2

REPORT INFORMATION
  Report Type: Report from Study
  Country: ES (occurrence: ES)
  Receive Date: 20250505
  Receipt Date: 20250505
  Transmission Date: 20250716
  Serious: Yes (Other)
  Sender: ELI LILLY AND COMPANY
  Company Number: ES-ELI_LILLY_AND_COMPANY-ES202502017416

PATIENT
  Age: 64 Year
  Sex: Female

DRUGS (2)
  1. ABEMACICLIB [Suspect]
     Active Substance: ABEMACICLIB
     Indication: Breast cancer
     Route: 048
     Dates: start: 20240904
  2. ABEMACICLIB [Suspect]
     Active Substance: ABEMACICLIB
     Route: 048

REACTIONS (3)
  - Rib fracture [Recovered/Resolved]
  - Pulmonary fibrosis [Recovering/Resolving]
  - Pneumonitis [Recovered/Resolved]
